FAERS Safety Report 8326502-3 (Version None)
Quarter: 2012Q1

REPORT INFORMATION
  Report Type: 
  Country: None (occurrence: None)
  Receive Date: 20120315
  Receipt Date: 20110308
  Transmission Date: 20120608
  Serious: No
  Sender: FDA-Public Use
  Company Number: PHHY2011US16954

PATIENT
  Age: 59 Year
  Sex: Female

DRUGS (20)
  1. GILENYA [Suspect]
     Indication: RELAPSING-REMITTING MULTIPLE SCLEROSIS
     Dosage: 0.5 MG, QD, ORAL
     Route: 048
     Dates: start: 20110113
  2. CELEXA [Concomitant]
  3. NITROSTAT [Concomitant]
  4. CELEBREX [Concomitant]
  5. CALTRATE 800 + VITAMIN D (CALCIUM CARBONATE , ERGOCALCIFEROL) [Concomitant]
  6. VITAMIN B12 [Concomitant]
  7. PROTONIX [Concomitant]
  8. WELLBUTRIN SR [Concomitant]
  9. BACLOFEN [Concomitant]
  10. ASCORBIC ACID [Concomitant]
  11. METHADONE HCL [Concomitant]
  12. PLAQUENIL [Concomitant]
  13. LORAZEPAM [Concomitant]
  14. LACTULOSE [Concomitant]
  15. ARICEPT [Concomitant]
  16. SHINCORT (TRIAMCINOLONE ACETONIDE) [Concomitant]
  17. SYNTHROID [Concomitant]
  18. EPIPEN [Concomitant]
  19. NASONEX [Concomitant]
  20. TRAZODONE HCL [Concomitant]

REACTIONS (3)
  - DYSPNOEA EXERTIONAL [None]
  - CHEST DISCOMFORT [None]
  - ELECTROCARDIOGRAM T WAVE ABNORMAL [None]
